FAERS Safety Report 6763053-1 (Version None)
Quarter: 2010Q2

REPORT INFORMATION
  Report Type: 
  Country: None (occurrence: None)
  Receive Date: 20100609
  Receipt Date: 20100527
  Transmission Date: 20101027
  Serious: Yes (Other)
  Sender: FDA-Public Use
  Company Number: PHHY2010CA34913

PATIENT
  Sex: Female

DRUGS (3)
  1. ACLASTA/ZOLEDRONATE T29581+A+ [Suspect]
     Indication: OSTEOPOROSIS
     Dosage: UNK
     Dates: start: 20091210
  2. VITAMIN D [Concomitant]
     Dosage: 1000
  3. CALCIUM CARBONATE [Concomitant]
     Dosage: 500

REACTIONS (1)
  - RIB FRACTURE [None]
